FAERS Safety Report 9296138 (Version 1)
Quarter: 2013Q2

REPORT INFORMATION
  Report Type: Spontaneous
  Country: GB (occurrence: None)
  Receive Date: 20130514
  Receipt Date: 20130514
  Transmission Date: 20140414
  Serious: Yes (Hospitalization)
  Sender: FDA-Public Use
  Company Number: GER/UKI/13/0029520

PATIENT
  Age: 65 Year
  Sex: Male

DRUGS (14)
  1. OMEPRAZOLE (OMEPRAZOLE) [Suspect]
     Indication: PRODUCT USED FOR UNKNOWN INDICATION
     Route: 048
     Dates: end: 20130422
  2. SUTENT [Suspect]
     Indication: CLEAR CELL RENAL CELL CARCINOMA
     Route: 048
     Dates: start: 20130326, end: 20130421
  3. AMLODIPINE [Concomitant]
  4. ATORVASTATIN [Concomitant]
  5. CODEINE [Concomitant]
  6. DICLOFENAC [Concomitant]
  7. DOMPERIDONE [Concomitant]
  8. EZETIMIBE [Concomitant]
  9. GABAPENTIN [Concomitant]
  10. GLICLAZIDE [Concomitant]
  11. LISINOPRIL [Concomitant]
  12. METFORMIN [Concomitant]
  13. PARACETAMOL [Concomitant]
  14. SITAGLIPTIN [Concomitant]

REACTIONS (4)
  - Hyponatraemia [None]
  - Thrombocytopenia [None]
  - Orthostatic hypotension [None]
  - Syncope [None]
